FAERS Safety Report 9648786 (Version 4)
Quarter: 2014Q2

REPORT INFORMATION
  Report Type: Spontaneous
  Country: AT (occurrence: AT)
  Receive Date: 20131028
  Receipt Date: 20140613
  Transmission Date: 20141212
  Serious: Yes (Death, Other)
  Sender: FDA-Public Use
  Company Number: AT-ASTRAZENECA-2013SE78752

PATIENT
  Age: 29543 Day
  Sex: Male
  Weight: 72.5 kg

DRUGS (4)
  1. BRILIQUE [Suspect]
     Indication: CORONARY ARTERY DISEASE
     Dosage: 90 MG, 1 IN THE MORNING, 1 IN THE EVENING
     Route: 048
     Dates: start: 20130815, end: 20131010
  2. BRILIQUE [Suspect]
     Indication: ACUTE MYOCARDIAL INFARCTION
     Dosage: 90 MG, 1 IN THE MORNING, 1 IN THE EVENING
     Route: 048
     Dates: start: 20130815, end: 20131010
  3. SORTIS / ATORVASTATIN [Suspect]
     Indication: HYPERLIPIDAEMIA
     Route: 048
     Dates: start: 20130815, end: 20131010
  4. THROMBO-ASA [Concomitant]
     Indication: ACUTE MYOCARDIAL INFARCTION

REACTIONS (8)
  - Rhabdomyolysis [Fatal]
  - Hepatitis toxic [Fatal]
  - Renal failure acute [Unknown]
  - Nausea [Unknown]
  - Vomiting [Unknown]
  - Dehydration [Unknown]
  - Ascites [Unknown]
  - Gastrointestinal malformation [Unknown]
